FAERS Safety Report 9967617 (Version 2)
Quarter: 2014Q1

REPORT INFORMATION
  Report Type: Report from Study
  Country: PR (occurrence: PR)
  Receive Date: 20140305
  Receipt Date: 20140305
  Transmission Date: 20141002
  Serious: No
  Sender: FDA-Public Use
  Company Number: PR-ABBVIE-12P-131-0917229-00

PATIENT
  Age: 47 Year
  Sex: Female
  Weight: 64.92 kg

DRUGS (10)
  1. HUMIRA [Suspect]
     Indication: RHEUMATOID ARTHRITIS
     Route: 058
     Dates: start: 2007, end: 201203
  2. HUMIRA [Suspect]
     Route: 058
     Dates: start: 201204
  3. SYNTHROID [Concomitant]
     Indication: THYROID DISORDER
     Route: 048
  4. METHOTREXATE [Concomitant]
     Indication: RHEUMATOID ARTHRITIS
     Route: 048
  5. FOLIC ACID [Concomitant]
     Indication: VITAMIN SUPPLEMENTATION
     Route: 048
  6. ULTRACET [Concomitant]
     Indication: PAIN
     Route: 048
  7. FELDENE [Concomitant]
     Indication: PAIN
     Route: 048
  8. VITAMIN C + D [Concomitant]
     Indication: VITAMIN SUPPLEMENTATION
     Route: 048
  9. OMEGA 3 FISH OIL [Concomitant]
     Indication: SUPPLEMENTATION THERAPY
     Route: 048
  10. VITAMIN E [Concomitant]
     Indication: VITAMIN SUPPLEMENTATION
     Route: 048

REACTIONS (2)
  - Pain [Recovered/Resolved]
  - Bacterial infection [Unknown]
